FAERS Safety Report 5748441-4 (Version None)
Quarter: 2008Q2

REPORT INFORMATION
  Report Type: 
  Country: None (occurrence: None)
  Receive Date: 20080523
  Receipt Date: 20080514
  Transmission Date: 20081010
  Serious: Yes (Other)
  Sender: FDA-Public Use
  Company Number: BR-PFIZER INC-2008034975

PATIENT
  Sex: Female

DRUGS (2)
  1. FRONTAL XR [Suspect]
     Indication: AFFECTIVE DISORDER
     Route: 048
  2. FRONTAL [Suspect]

REACTIONS (8)
  - DEPRESSION [None]
  - EYE PAIN [None]
  - GASTROOESOPHAGEAL REFLUX DISEASE [None]
  - GLAUCOMA [None]
  - LACRIMAL DISORDER [None]
  - PAIN [None]
  - POSTURE ABNORMAL [None]
  - VOMITING [None]
